FAERS Safety Report 17866361 (Version 2)
Quarter: 2020Q3

REPORT INFORMATION
  Report Type: Report from Study
  Country: GB (occurrence: GB)
  Receive Date: 20200605
  Receipt Date: 20200724
  Transmission Date: 20201103
  Serious: Yes (Other)
  Sender: FDA-Public Use
  Company Number: GB-SAMSUNG BIOEPIS-SB-2020-18666

PATIENT
  Sex: Male

DRUGS (2)
  1. IMRALDI [Suspect]
     Active Substance: ADALIMUMAB
     Route: 058
  2. IMRALDI [Suspect]
     Active Substance: ADALIMUMAB
     Indication: CROHN^S DISEASE
     Route: 058
     Dates: start: 20191205

REACTIONS (7)
  - Depressed mood [Unknown]
  - Mobility decreased [Unknown]
  - Anal abscess [Not Recovered/Not Resolved]
  - Weight increased [Unknown]
  - Sleep disorder [Unknown]
  - Anal fistula [Not Recovered/Not Resolved]
  - Stress [Unknown]
